FAERS Safety Report 9459244 (Version 1)
Quarter: 2013Q3

REPORT INFORMATION
  Report Type: Spontaneous
  Country: GB (occurrence: GB)
  Receive Date: 20130814
  Receipt Date: 20130814
  Transmission Date: 20140515
  Serious: Yes (Hospitalization, Other)
  Sender: FDA-Public Use
  Company Number: GB-009507513-0805GBR00128

PATIENT
  Age: 13 Year
  Sex: Male

DRUGS (1)
  1. HYDROCORTISONE [Suspect]
     Indication: DERMATITIS ATOPIC
     Dosage: 30 G, Q3W
     Route: 061

REACTIONS (4)
  - Cataract [Recovered/Resolved]
  - Endophthalmitis [Recovered/Resolved]
  - Cataract [Recovered/Resolved]
  - Posterior capsule opacification [Recovered/Resolved]
